FAERS Safety Report 20941944 (Version 1)
Quarter: 2022Q2

REPORT INFORMATION
  Report Type: Spontaneous
  Country: GB (occurrence: None)
  Receive Date: 20220610
  Receipt Date: 20220610
  Transmission Date: 20220720
  Serious: Yes (Hospitalization)
  Sender: FDA-Public Use
  Company Number: GB-ACS-20220017

PATIENT
  Age: 80 Year
  Sex: Male

DRUGS (10)
  1. CEFUROXIME SODIUM [Suspect]
     Active Substance: CEFUROXIME SODIUM
     Indication: Antibiotic prophylaxis
     Dosage: 1 MG/0.1 ML CEFUROXIME SODIUM, INTRACAMERAL USE () ; IN TOTAL
  2. MAXITROL [Concomitant]
     Active Substance: DEXAMETHASONE\NEOMYCIN SULFATE\POLYMYXIN B SULFATE
     Dosage: ()
  3. LISINOPRIL [Concomitant]
     Active Substance: LISINOPRIL
  4. BISOPROLOL [Concomitant]
     Active Substance: BISOPROLOL
  5. AMLODIPINE [Concomitant]
     Active Substance: AMLODIPINE BESYLATE
  6. RIVAROXABAN [Concomitant]
     Active Substance: RIVAROXABAN
  7. TAMSULOSIN [Concomitant]
     Active Substance: TAMSULOSIN
  8. SILDENAFIL [Concomitant]
     Active Substance: SILDENAFIL
  9. FLUTICASONE PROPIONATE\SALMETEROL XINAFOATE [Concomitant]
     Active Substance: FLUTICASONE PROPIONATE\SALMETEROL XINAFOATE
     Dosage: INHALATION USE ()
  10. ALBUTEROL [Concomitant]
     Active Substance: ALBUTEROL
     Dosage: INHALATION USE ()

REACTIONS (3)
  - Macular oedema [Recovered/Resolved]
  - Serous retinal detachment [Recovered/Resolved]
  - Off label use [Unknown]
